FAERS Safety Report 8343435-7 (Version None)
Quarter: 2012Q2

REPORT INFORMATION
  Report Type: 
  Country: None (occurrence: None)
  Receive Date: 20120508
  Receipt Date: 20120430
  Transmission Date: 20120825
  Serious: Yes (Hospitalization, Congenital Anomaly)
  Sender: FDA-Public Use
  Company Number: US-JNJFOC-20111104298

PATIENT
  Sex: Female
  Weight: 2.72 kg

DRUGS (20)
  1. TOPAMAX [Suspect]
     Indication: FOETAL EXPOSURE DURING PREGNANCY
     Route: 064
     Dates: start: 20030901, end: 20100521
  2. AMOXIL [Concomitant]
     Indication: FOETAL EXPOSURE DURING PREGNANCY
     Route: 064
  3. PRIMACARE [Concomitant]
     Indication: FOETAL EXPOSURE DURING PREGNANCY
     Route: 064
  4. VITAMIN K TAB [Concomitant]
     Indication: FOETAL EXPOSURE DURING PREGNANCY
     Route: 064
  5. PPI [Concomitant]
     Indication: FOETAL EXPOSURE DURING PREGNANCY
     Route: 064
  6. CEFOTAXIME [Concomitant]
     Indication: FOETAL EXPOSURE DURING PREGNANCY
     Route: 064
  7. ZANTAC [Concomitant]
     Indication: FOETAL EXPOSURE DURING PREGNANCY
     Route: 064
  8. BICITRA [Concomitant]
     Indication: FOETAL EXPOSURE DURING PREGNANCY
     Route: 064
  9. PHENERGAN [Concomitant]
     Indication: FOETAL EXPOSURE DURING PREGNANCY
     Route: 064
  10. GUAIFENESIN [Concomitant]
     Indication: FOETAL EXPOSURE DURING PREGNANCY
     Route: 064
  11. CIPROFLOXACIN [Concomitant]
     Indication: FOETAL EXPOSURE DURING PREGNANCY
     Route: 064
  12. ATIVAN [Concomitant]
     Indication: FOETAL EXPOSURE DURING PREGNANCY
     Route: 064
  13. PEPCID [Concomitant]
     Indication: FOETAL EXPOSURE DURING PREGNANCY
     Route: 064
  14. AMPICILLIN [Concomitant]
     Indication: FOETAL EXPOSURE DURING PREGNANCY
     Route: 064
  15. TYLENOL (CAPLET) [Concomitant]
     Indication: FOETAL EXPOSURE DURING PREGNANCY
     Route: 064
  16. REGLAN [Concomitant]
     Indication: FOETAL EXPOSURE DURING PREGNANCY
     Route: 064
  17. FOLIC ACID [Concomitant]
     Indication: FOETAL EXPOSURE DURING PREGNANCY
     Route: 064
  18. ZITHROMAX [Concomitant]
     Indication: FOETAL EXPOSURE DURING PREGNANCY
     Route: 064
  19. ANCEF [Concomitant]
     Indication: FOETAL EXPOSURE DURING PREGNANCY
     Route: 064
  20. AUGMENTIN [Concomitant]
     Indication: FOETAL EXPOSURE DURING PREGNANCY
     Route: 064

REACTIONS (3)
  - CLEFT PALATE [None]
  - CLEFT LIP [None]
  - TACHYCARDIA FOETAL [None]
